FAERS Safety Report 8595627-X (Version None)
Quarter: 2012Q3

REPORT INFORMATION
  Report Type: 
  Country: None (occurrence: None)
  Receive Date: 20120815
  Receipt Date: 20120813
  Transmission Date: 20120928
  Serious: No
  Sender: FDA-Public Use
  Company Number: US-PFIZER INC-2012197369

PATIENT
  Sex: Female

DRUGS (3)
  1. CLOTRIMAZOLE [Suspect]
  2. OXYCODONE HYDROCHLORIDE [Suspect]
  3. ACETYLSALICYLIC ACID SRT [Suspect]

REACTIONS (1)
  - DRUG HYPERSENSITIVITY [None]
